FAERS Safety Report 9396798 (Version 5)
Quarter: 2014Q1

REPORT INFORMATION
  Report Type: Report from Study
  Country: AR (occurrence: AR)
  Receive Date: 20130712
  Receipt Date: 20140323
  Transmission Date: 20141002
  Serious: Yes (Death, Other)
  Sender: FDA-Public Use
  Company Number: AR-BRISTOL-MYERS SQUIBB COMPANY-18976936

PATIENT
  Age: 76 Year
  Sex: Male

DRUGS (11)
  1. DASATINIB [Suspect]
     Indication: CHRONIC MYELOID LEUKAEMIA
     Dosage: LAST DOSE ON:23MAY2013?DOSE REDUCED TO:20MG ON 1APR2012
     Route: 048
     Dates: start: 20080609
  2. ATENOLOL [Concomitant]
     Dates: start: 2003
  3. ACETYLSALICYLIC ACID [Concomitant]
     Dates: start: 1998
  4. ROSUVASTATIN [Concomitant]
     Dates: start: 20091120
  5. PREDNISONE [Concomitant]
     Dates: start: 20121022
  6. AMILORIDE [Concomitant]
     Indication: PLEURAL EFFUSION
     Dates: start: 20110208
  7. ALLOPURINOL [Concomitant]
     Dates: start: 20110326
  8. IRON [Concomitant]
     Dates: start: 20110902
  9. DILTIAZEM HCL [Concomitant]
     Dates: start: 20120501
  10. FUROSEMIDE [Concomitant]
     Dates: start: 20110208
  11. FUROSEMIDE [Concomitant]
     Dates: start: 20110208

REACTIONS (4)
  - Cardiac failure [Fatal]
  - Septic shock [Fatal]
  - Pleural effusion [Fatal]
  - Pulmonary hypertension [Not Recovered/Not Resolved]
